FAERS Safety Report 5341163-3 (Version None)
Quarter: 2007Q2

REPORT INFORMATION
  Report Type: 
  Country: None (occurrence: None)
  Receive Date: 20070405
  Receipt Date: 20070110
  Transmission Date: 20071010
  Serious: No
  Sender: FDA-Public Use
  Company Number: US200701001837

PATIENT
  Age: 72 Year
  Sex: Female

DRUGS (5)
  1. CYMBALTA [Suspect]
     Indication: DEPRESSION
     Dosage: SEE IMAGE
     Route: 048
     Dates: start: 20061110, end: 20061117
  2. CYMBALTA [Suspect]
     Indication: DEPRESSION
     Dosage: SEE IMAGE
     Route: 048
     Dates: start: 20061117, end: 20070101
  3. CLONAZEPAM [Concomitant]
  4. MECLIZINE [Concomitant]
  5. ZOLOFT [Concomitant]

REACTIONS (5)
  - BREAST TENDERNESS [None]
  - DEPRESSION [None]
  - NASOPHARYNGITIS [None]
  - RHINORRHOEA [None]
  - VAGINAL ODOUR [None]
